FAERS Safety Report 6406525-1 (Version None)
Quarter: 2009Q4

REPORT INFORMATION
  Report Type: 
  Country: None (occurrence: None)
  Receive Date: 20091008
  Receipt Date: 20090925
  Transmission Date: 20100525
  Serious: Yes (Hospitalization)
  Sender: FDA-Public Use
  Company Number: THYM-1001177

PATIENT
  Age: 64 Year
  Sex: Male

DRUGS (37)
  1. THYMOGLOBULIN [Suspect]
     Indication: BONE MARROW TRANSPLANT
     Dosage: 1.5 MG/KG, QD, INTRAVENOUS
     Route: 042
     Dates: start: 20090803, end: 20090807
  2. CLOFARABINE (CLOFARABINE) [Concomitant]
  3. ACETAMINOPHEN [Concomitant]
  4. DIPHENHYDRAMINE HCL [Concomitant]
  5. MEPERIDINE HCL [Concomitant]
  6. ALUMINUM HYDROXIDE SUSPENSION [Concomitant]
  7. LOPERAMIDE (LOPERAMIDE) [Concomitant]
  8. MULTIVITAMIN [Concomitant]
  9. FOLIC ACID [Concomitant]
  10. ONDANSETRON (ONDASETRON) [Concomitant]
  11. ACYCLOVIR [Concomitant]
  12. FLUCONAZOLE [Concomitant]
  13. HYDROCERIN (PARAFFIN, LIQUID, WOOL ALCOHOLS) [Concomitant]
  14. FILGRASTIM (FILGRASTIM) [Concomitant]
  15. CAPHOSOL [Concomitant]
  16. MYCOPHENOLATE MOFETIL [Concomitant]
  17. LORAZEPAM [Concomitant]
  18. SENNA (SENNA ALEXANDRINA) [Concomitant]
  19. LEVOTHYROXINE SODIUM [Concomitant]
  20. TIMOLOL MALEATE [Concomitant]
  21. LIDOCAINE VISCOUS (LIDOCAINE HYDROCHLORIDE) [Concomitant]
  22. VANCOMYCIN [Concomitant]
  23. OXYMETAZOLINE (OXYMETAZOLINE) [Concomitant]
  24. TRIMETHOPRIM + SULFAMETHOXAZOLE [Concomitant]
  25. LEVOFLOXACIN [Concomitant]
  26. OXYCODONE HCL [Concomitant]
  27. GABAPENTIN [Concomitant]
  28. CEFEPIME [Concomitant]
  29. CYCLOSPORINE [Concomitant]
  30. DOCUSATE SODIUM ( DOCUSATE SODIUM) [Concomitant]
  31. LIDOCAINE [Concomitant]
  32. THYMOGLOBULIN [Suspect]
  33. THYMOGLOBULIN [Suspect]
  34. VANCOMYCIN [Concomitant]
  35. OXYMETAZOLINE HCL [Concomitant]
  36. TRIMETHROPRIM SULFAMETHOXAZOLE [Concomitant]
  37. LEVOFLOXACIN [Concomitant]

REACTIONS (5)
  - ACUTE GRAFT VERSUS HOST DISEASE IN SKIN [None]
  - BLOOD CREATININE INCREASED [None]
  - CYTOMEGALOVIRUS VIRAEMIA [None]
  - MALIGNANT NEOPLASM PROGRESSION [None]
  - PLASMACYTOMA [None]
